FAERS Safety Report 5933820-2 (Version None)
Quarter: 2008Q4

REPORT INFORMATION
  Report Type: 
  Country: None (occurrence: None)
  Receive Date: 20081024
  Receipt Date: 20081010
  Transmission Date: 20090506
  Serious: Yes (Other)
  Sender: FDA-Public Use
  Company Number: US-1167558

PATIENT
  Sex: Male

DRUGS (3)
  1. NEVANAC [Suspect]
     Indication: PHOTOREFRACTIVE KERATECTOMY
     Dosage: OU Q 2 HOURS X 3 DAYS OPHTHALMIC, OU Q 4 HOURS X 2 DAYS OPHTHALMIC
     Route: 047
  2. NEVANAC [Suspect]
     Indication: PHOTOREFRACTIVE KERATECTOMY
     Dosage: OU Q 2 HOURS X 3 DAYS OPHTHALMIC, OU Q 4 HOURS X 2 DAYS OPHTHALMIC
     Route: 047
  3. TOBRADEX [Suspect]
     Indication: PHOTOREFRACTIVE KERATECTOMY
     Dosage: OPHTHALMIC
     Route: 047

REACTIONS (1)
  - ULCERATIVE KERATITIS [None]
